FAERS Safety Report 15400151 (Version 1)
Quarter: 2018Q3

REPORT INFORMATION
  Report Type: Spontaneous
  Country: US (occurrence: US)
  Receive Date: 20180919
  Receipt Date: 20180919
  Transmission Date: 20181010
  Serious: No
  Sender: FDA-Public Use
  Company Number: US-BION-006964

PATIENT
  Age: 55 Year
  Sex: Female

DRUGS (19)
  1. FEXOFENADINE [Concomitant]
     Active Substance: FEXOFENADINE\FEXOFENADINE HYDROCHLORIDE
  2. VIVELLE?DOT [Concomitant]
     Active Substance: ESTRADIOL
  3. XYREM [Concomitant]
     Active Substance: SODIUM OXYBATE
     Indication: NARCOLEPSY
     Dosage: ALSO RECEIVED 3.75G BID ORAL FROM FEB?2017
     Route: 048
     Dates: start: 201605
  4. COLECALCIFEROL [Concomitant]
     Active Substance: CHOLECALCIFEROL
  5. ZETIA [Concomitant]
     Active Substance: EZETIMIBE
  6. PREDNISONE. [Concomitant]
     Active Substance: PREDNISONE
  7. XOPENEX?HFA [Concomitant]
  8. THIAMINE [Concomitant]
     Active Substance: THIAMINE
  9. XOLAIR [Concomitant]
     Active Substance: OMALIZUMAB
  10. SINGULAIR [Concomitant]
     Active Substance: MONTELUKAST SODIUM
  11. MINIVELLE [Concomitant]
     Active Substance: ESTRADIOL
  12. BUMETANIDE. [Concomitant]
     Active Substance: BUMETANIDE
  13. BENADRYL [Concomitant]
     Active Substance: DIPHENHYDRAMINE HYDROCHLORIDE
  14. EPIPEN [Concomitant]
     Active Substance: EPINEPHRINE
  15. ADVAIR HFA [Concomitant]
     Active Substance: FLUTICASONE PROPIONATE\SALMETEROL XINAFOATE
  16. ALVESCO [Concomitant]
     Active Substance: CICLESONIDE
  17. ZYRTEC [Suspect]
     Active Substance: CETIRIZINE HYDROCHLORIDE
     Indication: PRODUCT USED FOR UNKNOWN INDICATION
  18. SPIRONOLACTONE. [Concomitant]
     Active Substance: SPIRONOLACTONE
  19. MODAFINIL. [Concomitant]
     Active Substance: MODAFINIL

REACTIONS (2)
  - Hypertension [Unknown]
  - Weight decreased [Unknown]
